FAERS Safety Report 21925797 (Version 5)
Quarter: 2023Q2

REPORT INFORMATION
  Report Type: Report from Study
  Country: CA (occurrence: CA)
  Receive Date: 20230130
  Receipt Date: 20230526
  Transmission Date: 20230721
  Serious: Yes (Hospitalization, Other)
  Sender: FDA-Public Use
  Company Number: CA-009507513-2007CAN005537

PATIENT
  Age: 78 Year
  Sex: Female
  Weight: 98 kg

DRUGS (299)
  1. NASONEX [Suspect]
     Active Substance: MOMETASONE FUROATE
     Indication: Product used for unknown indication
     Dosage: 2 DOSAGE FORMS, 2 EVERY 1 DAYS (1 EVERY 12 HOURS) (DOSAGE FORM: SPRAYED METERED DOSE)
     Route: 065
  2. NASONEX [Suspect]
     Active Substance: MOMETASONE FUROATE
     Dosage: UNK (DOSAGE FORM: SPRAY, METERED DOSE)
     Route: 065
  3. NASONEX [Suspect]
     Active Substance: MOMETASONE FUROATE
     Dosage: UNK
     Route: 065
  4. NASONEX [Suspect]
     Active Substance: MOMETASONE FUROATE
     Dosage: UNK
     Route: 065
  5. NASONEX [Suspect]
     Active Substance: MOMETASONE FUROATE
     Dosage: UNK
     Route: 065
  6. SINGULAIR [Suspect]
     Active Substance: MONTELUKAST SODIUM
     Indication: Product used for unknown indication
     Dosage: 100 MG, 1 EVERY 1 DAYS
     Route: 065
  7. SINGULAIR [Suspect]
     Active Substance: MONTELUKAST SODIUM
     Dosage: 10 MG, 1 EVERY 1 DAYS; DOSAGE FORM: NOT SPECIFIED
     Route: 048
  8. SINGULAIR [Suspect]
     Active Substance: MONTELUKAST SODIUM
     Dosage: 100 MG, 1 EVERY 1 DAYS
     Route: 065
  9. SINGULAIR [Suspect]
     Active Substance: MONTELUKAST SODIUM
     Dosage: 10 MG, 1 EVERY 1 DAYS, DOSAGE FORM : NOT SPECIFIED
     Route: 048
  10. SINGULAIR [Suspect]
     Active Substance: MONTELUKAST SODIUM
     Dosage: 10 MG, 1 EVERY 1 DAYS
     Route: 048
  11. SINGULAIR [Suspect]
     Active Substance: MONTELUKAST SODIUM
     Dosage: UNK (DOSAGE FORM : NOT SPECIFIED)
     Route: 048
  12. SINGULAIR [Suspect]
     Active Substance: MONTELUKAST SODIUM
     Dosage: UNK; DOSAGE FORM: NOT SPECIFIED
     Route: 065
  13. SINGULAIR [Suspect]
     Active Substance: MONTELUKAST SODIUM
     Dosage: UNK
     Route: 065
  14. SINGULAIR [Suspect]
     Active Substance: MONTELUKAST SODIUM
     Dosage: UNK
     Route: 065
  15. MOMETASONE FUROATE [Suspect]
     Active Substance: MOMETASONE FUROATE
     Indication: Product used for unknown indication
     Dosage: UNK
     Route: 065
  16. MOMETASONE FUROATE [Suspect]
     Active Substance: MOMETASONE FUROATE
     Dosage: UNK
     Route: 065
  17. PNEUMOVAX 23 [Suspect]
     Active Substance: PNEUMOCOCCAL VACCINE, POLYVALENT 23
     Indication: Product used for unknown indication
     Dosage: UNK
     Route: 065
  18. PNEUMOVAX 23 [Suspect]
     Active Substance: PNEUMOCOCCAL VACCINE, POLYVALENT 23
     Indication: Immunisation
     Dosage: UNK
     Route: 065
  19. ACETAMINOPHEN [Suspect]
     Active Substance: ACETAMINOPHEN
     Indication: Product used for unknown indication
     Dosage: 1000 MG, DOSAGE FORM: NOT SPECIFIED
     Route: 065
  20. ACETAMINOPHEN [Suspect]
     Active Substance: ACETAMINOPHEN
     Dosage: 1000 MG, DOSAGE FORM: NOT SPECIFIED
     Route: 065
  21. ACETAMINOPHEN [Suspect]
     Active Substance: ACETAMINOPHEN
     Dosage: UNK
     Route: 065
  22. ATROVENT [Suspect]
     Active Substance: IPRATROPIUM BROMIDE
     Indication: Product used for unknown indication
     Dosage: UNK, DOSAGE FORM: NOT SPECIFIED
     Route: 065
  23. ATROVENT [Suspect]
     Active Substance: IPRATROPIUM BROMIDE
     Dosage: UNK, DOSAGE FORM: NOT SPECIFIED
     Route: 065
  24. AZITHROMYCIN [Suspect]
     Active Substance: AZITHROMYCIN
     Indication: Product used for unknown indication
     Dosage: UNK, DOSAGE FORM: NOT SPECIFIED
     Route: 065
  25. AZITHROMYCIN [Suspect]
     Active Substance: AZITHROMYCIN
     Dosage: UNK, DOSAGE FORM: NOT SPECIFIED
     Route: 065
  26. AZITHROMYCIN [Suspect]
     Active Substance: AZITHROMYCIN
     Dosage: UNK, DOSAGE FORM: NOT SPECIFIED
     Route: 065
  27. BISACODYL [Suspect]
     Active Substance: BISACODYL
     Indication: Product used for unknown indication
     Dosage: 8.6 MILLIGRAM (DOSAGE FORM: NOT SPECIFIED)
     Route: 065
  28. BISACODYL [Suspect]
     Active Substance: BISACODYL
     Dosage: UNK (DOSAGE FORM: NOT SPECIFIED)
     Route: 065
  29. BUDESONIDE [Suspect]
     Active Substance: BUDESONIDE
     Indication: Product used for unknown indication
     Dosage: UNK, DOSAGE FORM: NOT SPECIFIED
  30. BUDESONIDE [Suspect]
     Active Substance: BUDESONIDE
     Dosage: UNK
  31. BUDESONIDE [Suspect]
     Active Substance: BUDESONIDE
     Dosage: UNK (DOSAGE FORM : NOT SPECIFIED)
     Route: 065
  32. BUDESONIDE [Suspect]
     Active Substance: BUDESONIDE
     Dosage: UNK (DOSAGE FORM : NOT SPECIFIED)
     Route: 065
  33. BUDESONIDE\FORMOTEROL FUMARATE [Suspect]
     Active Substance: BUDESONIDE\FORMOTEROL FUMARATE
     Indication: Product used for unknown indication
     Dosage: 2 DOSAGE FORM, 2 EVERY 1 DAYS, DOSAGE FORM: NOT SPECIFIED
     Route: 065
  34. BUDESONIDE\FORMOTEROL FUMARATE [Suspect]
     Active Substance: BUDESONIDE\FORMOTEROL FUMARATE
     Dosage: UNK
  35. BUDESONIDE\FORMOTEROL FUMARATE [Suspect]
     Active Substance: BUDESONIDE\FORMOTEROL FUMARATE
     Dosage: 4 DOSAGE FORM, 1 EVERY 1 DAY, DOSAGE FORM : NOT SPECIFIED
     Route: 065
  36. BUDESONIDE\FORMOTEROL FUMARATE [Suspect]
     Active Substance: BUDESONIDE\FORMOTEROL FUMARATE
     Dosage: 1 EVERY 1 DAYS
     Route: 065
  37. BUDESONIDE\FORMOTEROL FUMARATE [Suspect]
     Active Substance: BUDESONIDE\FORMOTEROL FUMARATE
     Dosage: 2 DOSAGE FORM, 2 EVERY 1 DAYS
     Route: 065
  38. CANDESARTAN CILEXETIL [Suspect]
     Active Substance: CANDESARTAN CILEXETIL
     Indication: Product used for unknown indication
     Dosage: 8 MG, 1 EVERY 1 DAYS
     Route: 048
  39. CANDESARTAN CILEXETIL [Suspect]
     Active Substance: CANDESARTAN CILEXETIL
     Dosage: 8 MG, 1 EVERY 1 DAYS
     Route: 065
  40. CANDESARTAN CILEXETIL [Suspect]
     Active Substance: CANDESARTAN CILEXETIL
     Dosage: UNK
     Route: 065
  41. CANDESARTAN CILEXETIL [Suspect]
     Active Substance: CANDESARTAN CILEXETIL
     Dosage: 8 MG, 1 EVERY 1 DAYS
     Route: 048
  42. CANDESARTAN CILEXETIL [Suspect]
     Active Substance: CANDESARTAN CILEXETIL
     Dosage: UNK
     Route: 065
  43. DEXILANT [Suspect]
     Active Substance: DEXLANSOPRAZOLE
     Indication: Product used for unknown indication
     Dosage: UNK (DOSAGE FORM: PROLONGED RELEASE CAPSULE)
     Route: 065
  44. DEXILANT [Suspect]
     Active Substance: DEXLANSOPRAZOLE
     Dosage: UNK, DOSAGE FORM: DELAYED RELEASE CAPSULE
     Route: 065
  45. DEXILANT [Suspect]
     Active Substance: DEXLANSOPRAZOLE
     Dosage: UNK
     Route: 065
  46. DOMPERIDONE [Suspect]
     Active Substance: DOMPERIDONE
     Indication: Product used for unknown indication
     Dosage: UNK
     Route: 065
  47. DOMPERIDONE [Suspect]
     Active Substance: DOMPERIDONE
     Dosage: UNK
     Route: 065
  48. EFINACONAZOLE [Suspect]
     Active Substance: EFINACONAZOLE
     Indication: Product used for unknown indication
     Dosage: UNK
     Route: 065
  49. EFINACONAZOLE [Suspect]
     Active Substance: EFINACONAZOLE
     Dosage: UNK
     Route: 065
  50. NITROGLYCERIN [Suspect]
     Active Substance: NITROGLYCERIN
     Indication: Product used for unknown indication
     Dosage: UNK, DOSAGE FORM: NOT SPECIFIED
     Route: 065
  51. NITROGLYCERIN [Suspect]
     Active Substance: NITROGLYCERIN
     Dosage: UNK (DOSAGE FORM: NOT SPECIFIED)
     Route: 065
  52. FLUMIST QUADRIVALENT [Suspect]
     Active Substance: INFLUENZA A VIRUS A/CALIFORNIA/7/2009 (H1N1) LIVE(ATTENUATED) ANTIGEN\INFLUENZA A VIRUS A/TEXAS/50/2
     Indication: Prophylaxis
     Dosage: 0.2 ML PREFILLED SINGLE USE GLASS SPRAYER, DOSAGE FORM: SPRAY (NOT INHALATION)
     Route: 065
  53. FLUMIST QUADRIVALENT [Suspect]
     Active Substance: INFLUENZA A VIRUS A/CALIFORNIA/7/2009 (H1N1) LIVE(ATTENUATED) ANTIGEN\INFLUENZA A VIRUS A/TEXAS/50/2
     Indication: Immunisation
     Dosage: 0.2 ML PREFILLED SINGLE USE GLASS SPRAYER, FREQUENCY: TOTAL
     Route: 065
  54. FLUMIST QUADRIVALENT [Suspect]
     Active Substance: INFLUENZA A VIRUS A/CALIFORNIA/7/2009 (H1N1) LIVE(ATTENUATED) ANTIGEN\INFLUENZA A VIRUS A/TEXAS/50/2
     Indication: Product used for unknown indication
     Dosage: 0.2 ML PREFILLED SINGLE USE GLASS SPRAYER, FREQUENCY: TOTAL
     Route: 065
  55. FLUMIST QUADRIVALENT [Suspect]
     Active Substance: INFLUENZA A VIRUS A/CALIFORNIA/7/2009 (H1N1) LIVE(ATTENUATED) ANTIGEN\INFLUENZA A VIRUS A/TEXAS/50/2
     Dosage: 0.2 ML PREFILLED SINGLE USE GLASS SPRAYER
     Route: 065
  56. LANSOPRAZOLE [Suspect]
     Active Substance: LANSOPRAZOLE
     Indication: Product used for unknown indication
     Dosage: UNK
     Route: 048
  57. LANSOPRAZOLE [Suspect]
     Active Substance: LANSOPRAZOLE
     Dosage: UNK
     Route: 065
  58. LEVOTHYROXINE SODIUM [Suspect]
     Active Substance: LEVOTHYROXINE SODIUM
     Indication: Product used for unknown indication
     Dosage: UNK, DOSAGE FORM: NOT SPECIFIED
     Route: 065
  59. LEVOTHYROXINE SODIUM [Suspect]
     Active Substance: LEVOTHYROXINE SODIUM
     Dosage: UNK, DOSAGE FORM: NOT SPECIFIED
     Route: 065
  60. LEVOTHYROXINE SODIUM [Suspect]
     Active Substance: LEVOTHYROXINE SODIUM
     Dosage: UNK, DOSAGE FORM: NOT SPECIFIED
     Route: 065
  61. LEVOTHYROXINE SODIUM [Suspect]
     Active Substance: LEVOTHYROXINE SODIUM
     Dosage: UNK, DOSAGE FORM: NOT SPECIFIED
     Route: 065
  62. MEPOLIZUMAB [Suspect]
     Active Substance: MEPOLIZUMAB
     Indication: Product used for unknown indication
     Dosage: 100 MILLIGRAM, 1 EVERY 1 MONTHS, INTRAVENOUS (NOT OTHERWISE SPECIFIED)
     Route: 042
  63. MEPOLIZUMAB [Suspect]
     Active Substance: MEPOLIZUMAB
     Indication: Asthma
     Dosage: 100 MILLIGRAM, INTRAVENOUS (NOT OTHERWISE SPECIFIED)
     Route: 042
  64. MEPOLIZUMAB [Suspect]
     Active Substance: MEPOLIZUMAB
     Dosage: 100 MILLIGRAM, INTRAVENOUS (NOT OTHERWISE SPECIFIED)
     Route: 042
  65. MEPOLIZUMAB [Suspect]
     Active Substance: MEPOLIZUMAB
     Dosage: 100 MILLIGRAM, INTRAVENOUS (NOT OTHERWISE SPECIFIED)
     Route: 042
  66. MEPOLIZUMAB [Suspect]
     Active Substance: MEPOLIZUMAB
     Dosage: 100 MILLIGRAM, INTRAVENOUS (NOT OTHERWISE SPECIFIED)
     Route: 042
  67. MEPOLIZUMAB [Suspect]
     Active Substance: MEPOLIZUMAB
     Dosage: 100 MILLIGRAM, INTRAVENOUS (NOT OTHERWISE SPECIFIED)
     Route: 042
  68. MEPOLIZUMAB [Suspect]
     Active Substance: MEPOLIZUMAB
     Dosage: 100 MILLIGRAM, INTRAVENOUS (NOT OTHERWISE SPECIFIED)
     Route: 042
  69. MEPOLIZUMAB [Suspect]
     Active Substance: MEPOLIZUMAB
     Dosage: 100 MILLIGRAM, INTRAVENOUS (NOT OTHERWISE SPECIFIED)
     Route: 042
  70. MEPOLIZUMAB [Suspect]
     Active Substance: MEPOLIZUMAB
     Dosage: 100 MILLIGRAM, INTRAVENOUS (NOT OTHERWISE SPECIFIED)
     Route: 042
  71. MEPOLIZUMAB [Suspect]
     Active Substance: MEPOLIZUMAB
     Dosage: 100 MILLIGRAM, INTRAVENOUS (NOT OTHERWISE SPECIFIED)
     Route: 042
  72. MEPOLIZUMAB [Suspect]
     Active Substance: MEPOLIZUMAB
     Dosage: 100 MILLIGRAM, UNK
     Route: 065
  73. MEPOLIZUMAB [Suspect]
     Active Substance: MEPOLIZUMAB
     Dosage: 100 MILLIGRAM, 1 EVERY 1 MONTHS, INTRAVENOUS (NOT OTHERWISE SPECIFIED)
     Route: 042
  74. MEPOLIZUMAB [Suspect]
     Active Substance: MEPOLIZUMAB
     Dosage: 100 MILLIGRAM, 1 EVERY 1 MONTHS, INTRAVENOUS (NOT OTHERWISE SPECIFIED)
     Route: 042
  75. MORPHINE HYDROCHLORIDE [Suspect]
     Active Substance: MORPHINE HYDROCHLORIDE
     Indication: Product used for unknown indication
     Dosage: UNK (DOSAGE FORM: NOT SPECIFIED)
     Route: 065
  76. MORPHINE HYDROCHLORIDE [Suspect]
     Active Substance: MORPHINE HYDROCHLORIDE
     Dosage: 10 MILLIGRAM, DOSAGE FORM: NOT SPECIFIED
     Route: 048
  77. MORPHINE HYDROCHLORIDE [Suspect]
     Active Substance: MORPHINE HYDROCHLORIDE
     Dosage: 10 MILLIGRAM, DOSAGE FORM: NOT SPECIFIED
     Route: 048
  78. MORPHINE HYDROCHLORIDE [Suspect]
     Active Substance: MORPHINE HYDROCHLORIDE
     Dosage: 10 MG, DOSAGE FORM: NOT SPECIFIED
     Route: 048
  79. MORPHINE HYDROCHLORIDE [Suspect]
     Active Substance: MORPHINE HYDROCHLORIDE
     Dosage: UNK, DOSAGE FORM: NOT SPECIFIED
     Route: 048
  80. MORPHINE HYDROCHLORIDE [Suspect]
     Active Substance: MORPHINE HYDROCHLORIDE
     Dosage: 10 MILLIGRAM, DOSAGE FORM: NOT SPECIFIED
     Route: 048
  81. MORPHINE HYDROCHLORIDE [Suspect]
     Active Substance: MORPHINE HYDROCHLORIDE
     Dosage: 10 MILLIGRAM (DOSAGE FORM : NOT SPECIFIED)
     Route: 048
  82. MORPHINE HYDROCHLORIDE [Suspect]
     Active Substance: MORPHINE HYDROCHLORIDE
     Dosage: 10 MG, UNK
     Route: 048
  83. MORPHINE HYDROCHLORIDE [Suspect]
     Active Substance: MORPHINE HYDROCHLORIDE
     Dosage: UNK (DOSAGE FORM: NOT SPECIFIED)
     Route: 065
  84. MORPHINE HYDROCHLORIDE [Suspect]
     Active Substance: MORPHINE HYDROCHLORIDE
     Dosage: 10 MG, DOSAGE FORM: NOT SPECIFIED
     Route: 065
  85. MORPHINE HYDROCHLORIDE [Suspect]
     Active Substance: MORPHINE HYDROCHLORIDE
     Dosage: 10 MILLIGRAM
     Route: 065
  86. MORPHINE HYDROCHLORIDE [Suspect]
     Active Substance: MORPHINE HYDROCHLORIDE
     Dosage: 10 MILLIGRAM
     Route: 065
  87. MORPHINE HYDROCHLORIDE [Suspect]
     Active Substance: MORPHINE HYDROCHLORIDE
     Dosage: UNK
     Route: 065
  88. MORPHINE HYDROCHLORIDE [Suspect]
     Active Substance: MORPHINE HYDROCHLORIDE
     Dosage: UNK
     Route: 065
  89. MORPHINE HYDROCHLORIDE [Suspect]
     Active Substance: MORPHINE HYDROCHLORIDE
     Dosage: 10 MILLIGRAM
     Route: 065
  90. MORPHINE HYDROCHLORIDE [Suspect]
     Active Substance: MORPHINE HYDROCHLORIDE
     Dosage: UNK
     Route: 065
  91. MORPHINE HYDROCHLORIDE [Suspect]
     Active Substance: MORPHINE HYDROCHLORIDE
     Dosage: UNK
     Route: 065
  92. MORPHINE HYDROCHLORIDE [Suspect]
     Active Substance: MORPHINE HYDROCHLORIDE
     Dosage: 10 MILLIGRAM
     Route: 065
  93. NITROGLYCERIN [Suspect]
     Active Substance: NITROGLYCERIN
     Indication: Product used for unknown indication
     Dosage: UNK, DOSAGE FORM: NOT SPECIFIED
     Route: 065
  94. NITROGLYCERIN [Suspect]
     Active Substance: NITROGLYCERIN
     Dosage: UNK
     Route: 065
  95. NITROGLYCERIN [Suspect]
     Active Substance: NITROGLYCERIN
     Dosage: UNK
     Route: 065
  96. OMALIZUMAB [Suspect]
     Active Substance: OMALIZUMAB
     Indication: Product used for unknown indication
     Dosage: UNK, DOSAGE FORM: NOT SPECIFIED
     Route: 065
  97. OMALIZUMAB [Suspect]
     Active Substance: OMALIZUMAB
     Dosage: UNK, DOSAGE FORM: NOT SPECIFIED
     Route: 065
  98. OMALIZUMAB [Suspect]
     Active Substance: OMALIZUMAB
     Dosage: UNK (DOSAGE FORM : NOT SPECIFIED)
     Route: 065
  99. OMALIZUMAB [Suspect]
     Active Substance: OMALIZUMAB
     Dosage: UNK
     Route: 065
  100. OMALIZUMAB [Suspect]
     Active Substance: OMALIZUMAB
     Dosage: UNK
     Route: 065
  101. OMALIZUMAB [Suspect]
     Active Substance: OMALIZUMAB
     Dosage: UNK
     Route: 065
  102. OMALIZUMAB [Suspect]
     Active Substance: OMALIZUMAB
     Dosage: UNK
     Route: 065
  103. OMALIZUMAB [Suspect]
     Active Substance: OMALIZUMAB
     Dosage: UNK
     Route: 065
  104. OMALIZUMAB [Suspect]
     Active Substance: OMALIZUMAB
     Dosage: UNK
     Route: 065
  105. PANTOPRAZOLE SODIUM [Suspect]
     Active Substance: PANTOPRAZOLE SODIUM
     Indication: Product used for unknown indication
     Dosage: UNK
     Route: 065
  106. PANTOPRAZOLE SODIUM [Suspect]
     Active Substance: PANTOPRAZOLE SODIUM
     Indication: Immunisation
     Dosage: UNK (DOSAGE FORM: NOT SPECIFIED)
     Route: 065
  107. PANTOPRAZOLE SODIUM [Suspect]
     Active Substance: PANTOPRAZOLE SODIUM
     Indication: Asthma
     Dosage: UNK (DOSAGE FORM: TABLET (ENTERIC- COATED))
     Route: 065
  108. PANTOPRAZOLE SODIUM [Suspect]
     Active Substance: PANTOPRAZOLE SODIUM
     Dosage: UNK (DOSAGE FORM: TABLET (ENTERIC- COATED))
     Route: 065
  109. PANTOPRAZOLE SODIUM [Suspect]
     Active Substance: PANTOPRAZOLE SODIUM
     Dosage: UNK (DOSAGE FORM: TABLET (ENTERIC- COATED))
     Route: 065
  110. PANTOPRAZOLE SODIUM [Suspect]
     Active Substance: PANTOPRAZOLE SODIUM
     Dosage: UNK
     Route: 065
  111. PANTOPRAZOLE SODIUM [Suspect]
     Active Substance: PANTOPRAZOLE SODIUM
     Dosage: UNK
     Route: 065
  112. PANTOPRAZOLE SODIUM [Suspect]
     Active Substance: PANTOPRAZOLE SODIUM
     Dosage: UNK
     Route: 065
  113. PANTOPRAZOLE SODIUM [Suspect]
     Active Substance: PANTOPRAZOLE SODIUM
     Dosage: UNK
     Route: 065
  114. PANTOPRAZOLE SODIUM [Suspect]
     Active Substance: PANTOPRAZOLE SODIUM
     Dosage: UNK
     Route: 065
  115. PANTOPRAZOLE SODIUM [Suspect]
     Active Substance: PANTOPRAZOLE SODIUM
     Dosage: UNK
     Route: 065
  116. PANTOPRAZOLE SODIUM [Suspect]
     Active Substance: PANTOPRAZOLE SODIUM
     Dosage: UNK
     Route: 065
  117. PANTOPRAZOLE SODIUM [Suspect]
     Active Substance: PANTOPRAZOLE SODIUM
     Dosage: UNK
     Route: 065
  118. PANTOPRAZOLE SODIUM [Suspect]
     Active Substance: PANTOPRAZOLE SODIUM
     Dosage: UNK
     Route: 065
  119. PANTOPRAZOLE SODIUM [Suspect]
     Active Substance: PANTOPRAZOLE SODIUM
     Dosage: UNK
     Route: 065
  120. PANTOPRAZOLE SODIUM [Suspect]
     Active Substance: PANTOPRAZOLE SODIUM
     Dosage: UNK
     Route: 048
  121. PANTOPRAZOLE SODIUM [Suspect]
     Active Substance: PANTOPRAZOLE SODIUM
     Dosage: 2 DOSAGE FORM, 2 EVERY 1 DAYS
     Route: 065
  122. PANTOPRAZOLE SODIUM [Suspect]
     Active Substance: PANTOPRAZOLE SODIUM
     Dosage: 1 DOSAGE FORM, 1 EVERY 1 DAYS
     Route: 065
  123. PANTOPRAZOLE SODIUM [Suspect]
     Active Substance: PANTOPRAZOLE SODIUM
     Dosage: UNK
     Route: 065
  124. PANTOPRAZOLE SODIUM [Suspect]
     Active Substance: PANTOPRAZOLE SODIUM
     Dosage: UNK
     Route: 065
  125. PANTOPRAZOLE SODIUM [Suspect]
     Active Substance: PANTOPRAZOLE SODIUM
     Dosage: UNK
     Route: 065
  126. PANTOPRAZOLE SODIUM [Suspect]
     Active Substance: PANTOPRAZOLE SODIUM
     Dosage: UNK
     Route: 065
  127. PANTOPRAZOLE SODIUM [Suspect]
     Active Substance: PANTOPRAZOLE SODIUM
     Dosage: UNK
     Route: 065
  128. PANTOPRAZOLE SODIUM [Suspect]
     Active Substance: PANTOPRAZOLE SODIUM
     Dosage: UNK
     Route: 065
  129. PANTOPRAZOLE SODIUM [Suspect]
     Active Substance: PANTOPRAZOLE SODIUM
     Dosage: UNK
     Route: 065
  130. PANTOPRAZOLE SODIUM [Suspect]
     Active Substance: PANTOPRAZOLE SODIUM
     Dosage: 10 MILLIGRAM
     Route: 065
  131. PANTOPRAZOLE SODIUM [Suspect]
     Active Substance: PANTOPRAZOLE SODIUM
     Dosage: UNK
     Route: 065
  132. PANTOPRAZOLE SODIUM [Suspect]
     Active Substance: PANTOPRAZOLE SODIUM
     Dosage: UNK
     Route: 065
  133. PANTOPRAZOLE SODIUM [Suspect]
     Active Substance: PANTOPRAZOLE SODIUM
     Dosage: UNK
     Route: 065
  134. PANTOPRAZOLE SODIUM [Suspect]
     Active Substance: PANTOPRAZOLE SODIUM
     Dosage: UNK
     Route: 065
  135. PANTOPRAZOLE SODIUM [Suspect]
     Active Substance: PANTOPRAZOLE SODIUM
     Dosage: UNK
     Route: 065
  136. PANTOPRAZOLE SODIUM [Suspect]
     Active Substance: PANTOPRAZOLE SODIUM
     Dosage: 0.5 MILLIGRAM
     Route: 048
  137. PANTOPRAZOLE SODIUM [Suspect]
     Active Substance: PANTOPRAZOLE SODIUM
     Dosage: 10 MILLIGRAM, 1 EVERY 1 DAYS
     Route: 048
  138. PANTOPRAZOLE SODIUM [Suspect]
     Active Substance: PANTOPRAZOLE SODIUM
     Dosage: 8 MILLIGRAM, 1 EVERY 1 DAYS
     Route: 065
  139. PANTOPRAZOLE SODIUM [Suspect]
     Active Substance: PANTOPRAZOLE SODIUM
     Dosage: UNK
     Route: 065
  140. PANTOPRAZOLE SODIUM [Suspect]
     Active Substance: PANTOPRAZOLE SODIUM
     Dosage: UNK
     Route: 065
  141. PANTOPRAZOLE SODIUM [Suspect]
     Active Substance: PANTOPRAZOLE SODIUM
     Dosage: UNK
     Route: 065
  142. PANTOPRAZOLE SODIUM [Suspect]
     Active Substance: PANTOPRAZOLE SODIUM
     Dosage: UNK
     Route: 065
  143. PANTOPRAZOLE SODIUM [Suspect]
     Active Substance: PANTOPRAZOLE SODIUM
     Dosage: UNK
     Route: 065
  144. PANTOPRAZOLE SODIUM [Suspect]
     Active Substance: PANTOPRAZOLE SODIUM
     Dosage: UNK
     Route: 065
  145. PANTOPRAZOLE SODIUM [Suspect]
     Active Substance: PANTOPRAZOLE SODIUM
     Dosage: 100 MILLIGRAM, 1 EVERY 1 DAYS
     Route: 065
  146. PANTOPRAZOLE SODIUM [Suspect]
     Active Substance: PANTOPRAZOLE SODIUM
     Dosage: 100 MILLIGRAM
     Route: 065
  147. PANTOPRAZOLE SODIUM [Suspect]
     Active Substance: PANTOPRAZOLE SODIUM
     Dosage: UNK
     Route: 065
  148. PANTOPRAZOLE SODIUM [Suspect]
     Active Substance: PANTOPRAZOLE SODIUM
     Dosage: UNK
     Route: 065
  149. PANTOPRAZOLE SODIUM [Suspect]
     Active Substance: PANTOPRAZOLE SODIUM
     Dosage: UNK
     Route: 065
  150. PANTOPRAZOLE SODIUM [Suspect]
     Active Substance: PANTOPRAZOLE SODIUM
     Dosage: 0.25 MILLIGRAM
     Route: 048
  151. PANTOPRAZOLE SODIUM [Suspect]
     Active Substance: PANTOPRAZOLE SODIUM
     Dosage: 75 MILLIGRAM
     Route: 048
  152. PANTOPRAZOLE [Suspect]
     Active Substance: PANTOPRAZOLE
     Indication: Product used for unknown indication
     Dosage: UNK, DOSAGE FORM: NOT SPECIFIED
     Route: 065
  153. PANTOPRAZOLE [Suspect]
     Active Substance: PANTOPRAZOLE
     Dosage: UNK, DOSAGE FORM: NOT SPECIFIED
     Route: 065
  154. PANTOPRAZOLE [Suspect]
     Active Substance: PANTOPRAZOLE
     Dosage: UNK
     Route: 065
  155. PANTOPRAZOLE [Suspect]
     Active Substance: PANTOPRAZOLE
     Dosage: 0.5 MILLIGRAM
     Route: 048
  156. PANTOPRAZOLE [Suspect]
     Active Substance: PANTOPRAZOLE
     Dosage: UNK, 2 EVERY 1 DAYS
     Route: 065
  157. PANTOPRAZOLE [Suspect]
     Active Substance: PANTOPRAZOLE
     Dosage: 0.25 MILLIGRAM
     Route: 048
  158. PANTOPRAZOLE [Suspect]
     Active Substance: PANTOPRAZOLE
     Dosage: 8 MILLIGRAM
     Route: 065
  159. PANTOPRAZOLE [Suspect]
     Active Substance: PANTOPRAZOLE
     Dosage: 100 MILLIGRAM
     Route: 065
  160. PANTOPRAZOLE [Suspect]
     Active Substance: PANTOPRAZOLE
     Dosage: 75 MILLIGRAM
     Route: 048
  161. PANTOPRAZOLE [Suspect]
     Active Substance: PANTOPRAZOLE
     Dosage: 100 MILLIGRAM
     Route: 065
  162. PANTOPRAZOLE [Suspect]
     Active Substance: PANTOPRAZOLE
     Dosage: 100 MILLIGRAM
     Route: 065
  163. PANTOPRAZOLE [Suspect]
     Active Substance: PANTOPRAZOLE
     Dosage: UNK
     Route: 065
  164. PANTOPRAZOLE [Suspect]
     Active Substance: PANTOPRAZOLE
     Dosage: 10 MILLIGRAM
     Route: 065
  165. PANTOPRAZOLE [Suspect]
     Active Substance: PANTOPRAZOLE
     Dosage: UNK
     Route: 065
  166. PRAMIPEXOLE DIHYDROCHLORIDE [Suspect]
     Active Substance: PRAMIPEXOLE DIHYDROCHLORIDE
     Indication: Product used for unknown indication
     Dosage: 0.5 MG, DOSAGE FORM: NOT SPECIFIED
     Route: 048
  167. PRAMIPEXOLE DIHYDROCHLORIDE [Suspect]
     Active Substance: PRAMIPEXOLE DIHYDROCHLORIDE
     Dosage: 0.25 MG, DOSAGE FORM: NOT SPECIFIED
     Route: 048
  168. PRAMIPEXOLE DIHYDROCHLORIDE [Suspect]
     Active Substance: PRAMIPEXOLE DIHYDROCHLORIDE
     Dosage: UNK, DOSAGE FORM: NOT SPECIFIED
     Route: 065
  169. PRAMIPEXOLE DIHYDROCHLORIDE [Suspect]
     Active Substance: PRAMIPEXOLE DIHYDROCHLORIDE
     Dosage: 0.5 MG
     Route: 048
  170. PRAMIPEXOLE DIHYDROCHLORIDE [Suspect]
     Active Substance: PRAMIPEXOLE DIHYDROCHLORIDE
     Dosage: 0.25 MG
     Route: 048
  171. PREGABALIN [Suspect]
     Active Substance: PREGABALIN
     Indication: Product used for unknown indication
     Dosage: 75 MILLIGRAM
     Route: 048
  172. PREGABALIN [Suspect]
     Active Substance: PREGABALIN
     Dosage: UNK
     Route: 048
  173. PREGABALIN [Suspect]
     Active Substance: PREGABALIN
     Dosage: 75 MILLIGRAM
     Route: 048
  174. PREGABALIN [Suspect]
     Active Substance: PREGABALIN
     Dosage: UNK
     Route: 065
  175. PREVNAR [Suspect]
     Active Substance: PNEUMOCOCCAL 7-VALENT CONJUGATE VACCINE (DIPHTHERIA CRM197 PROTEIN)
     Indication: Product used for unknown indication
     Dosage: DOSAGE FORM: SUSPENSION INTRAMUSCULAR, FREQUENCY: TOTAL
     Route: 065
  176. PREVNAR [Suspect]
     Active Substance: PNEUMOCOCCAL 7-VALENT CONJUGATE VACCINE (DIPHTHERIA CRM197 PROTEIN)
     Indication: Immunisation
     Dosage: UNK
     Route: 065
  177. PREVNAR [Suspect]
     Active Substance: PNEUMOCOCCAL 7-VALENT CONJUGATE VACCINE (DIPHTHERIA CRM197 PROTEIN)
     Dosage: DOSAGE FORM: SUSPENSION INTRAMUSCULAR
     Route: 030
  178. PREVNAR [Suspect]
     Active Substance: PNEUMOCOCCAL 7-VALENT CONJUGATE VACCINE (DIPHTHERIA CRM197 PROTEIN)
     Dosage: UNK
     Route: 065
  179. PREVNAR [Suspect]
     Active Substance: PNEUMOCOCCAL 7-VALENT CONJUGATE VACCINE (DIPHTHERIA CRM197 PROTEIN)
     Dosage: UNK
     Route: 065
  180. QUETIAPINE FUMARATE [Suspect]
     Active Substance: QUETIAPINE FUMARATE
     Indication: Product used for unknown indication
     Dosage: UNK
     Route: 048
  181. QUETIAPINE FUMARATE [Suspect]
     Active Substance: QUETIAPINE FUMARATE
     Dosage: 86 MILLIGRAM
     Route: 065
  182. QUETIAPINE FUMARATE [Suspect]
     Active Substance: QUETIAPINE FUMARATE
     Dosage: UNK
     Route: 065
  183. RANITIDINE HYDROCHLORIDE [Suspect]
     Active Substance: RANITIDINE HYDROCHLORIDE
     Indication: Product used for unknown indication
     Dosage: UNK
     Route: 065
  184. RANITIDINE HYDROCHLORIDE [Suspect]
     Active Substance: RANITIDINE HYDROCHLORIDE
     Indication: Influenza
     Dosage: UNK
     Route: 065
  185. RANITIDINE HYDROCHLORIDE [Suspect]
     Active Substance: RANITIDINE HYDROCHLORIDE
     Dosage: UNK; DOSAGE FORM: NOT SPECIFIED
     Route: 065
  186. RISEDRONATE SODIUM [Suspect]
     Active Substance: RISEDRONATE SODIUM
     Indication: Product used for unknown indication
     Dosage: UNK, DOSAGE FORM: NOT SPECIFIED
     Route: 065
  187. RISEDRONATE SODIUM [Suspect]
     Active Substance: RISEDRONATE SODIUM
     Dosage: UNK, DOSAGE FORM: NOT SPECIFIED
     Route: 065
  188. ROSUVASTATIN CALCIUM [Suspect]
     Active Substance: ROSUVASTATIN CALCIUM
     Indication: Product used for unknown indication
     Dosage: UNK
     Route: 048
  189. ROSUVASTATIN CALCIUM [Suspect]
     Active Substance: ROSUVASTATIN CALCIUM
     Dosage: 86 MILLIGRAM
     Route: 065
  190. ROSUVASTATIN CALCIUM [Suspect]
     Active Substance: ROSUVASTATIN CALCIUM
     Dosage: UNK
     Route: 065
  191. ALBUTEROL SULFATE [Suspect]
     Active Substance: ALBUTEROL SULFATE
     Indication: Product used for unknown indication
     Dosage: 100 MICROGRAM, DOSAGE FORM: NOT SPECIFIED
     Route: 065
  192. ALBUTEROL SULFATE [Suspect]
     Active Substance: ALBUTEROL SULFATE
     Indication: Asthma
     Dosage: UNK, DOSAGE FORM: NOT SPECIFIED
     Route: 065
  193. ALBUTEROL SULFATE [Suspect]
     Active Substance: ALBUTEROL SULFATE
     Dosage: 100 MICROGRAM
     Route: 065
  194. ALBUTEROL SULFATE [Suspect]
     Active Substance: ALBUTEROL SULFATE
     Dosage: 100 MILLIGRAM
     Route: 065
  195. SENNA LEAF [Suspect]
     Active Substance: SENNA LEAF
     Indication: Product used for unknown indication
     Dosage: UNK (FORMULATION REPORTED AS DROPS ORAL)
     Route: 065
  196. SENNOSIDES [Suspect]
     Active Substance: SENNOSIDES
     Indication: Product used for unknown indication
     Dosage: 8.6 MILLIGRAM
     Route: 065
  197. SENNOSIDES [Suspect]
     Active Substance: SENNOSIDES
     Dosage: 8.6 MILLIGRAM
     Route: 065
  198. SENNOSIDES [Suspect]
     Active Substance: SENNOSIDES
     Dosage: UNK; DOSAGE FORM: NOT SPECIFIED
     Route: 065
  199. SENOKOT [Suspect]
     Active Substance: SENNOSIDES
     Indication: Product used for unknown indication
     Dosage: UNK
     Route: 065
  200. SENOKOT [Suspect]
     Active Substance: SENNOSIDES
     Dosage: UNK; DOSAGE FORM: NOT SPECIFIED
     Route: 065
  201. SENOKOT [Suspect]
     Active Substance: SENNOSIDES
     Dosage: 8.6 MILLIGRAM
     Route: 048
  202. SENOKOT [Suspect]
     Active Substance: SENNOSIDES
     Dosage: 86 MILLIGRAM
     Route: 065
  203. SENOKOT [Suspect]
     Active Substance: SENNOSIDES
     Dosage: UNK
     Route: 048
  204. SPIRIVA [Suspect]
     Active Substance: TIOTROPIUM BROMIDE MONOHYDRATE
     Indication: Product used for unknown indication
     Dosage: 1 DF, 1 EVERY 1 DAYS, DOSAGE FORM: NOT SPECIFIED
     Route: 065
  205. SPIRIVA [Suspect]
     Active Substance: TIOTROPIUM BROMIDE MONOHYDRATE
     Dosage: UNK, DOSAGE FORM: NOT SPECIFIED
     Route: 065
  206. SPIRIVA [Suspect]
     Active Substance: TIOTROPIUM BROMIDE MONOHYDRATE
     Dosage: 1 DF, 1 EVERY 1 DAYS, DOSAGE FORM: NOT SPECIFIED
     Route: 065
  207. MORPHINE SULFATE [Suspect]
     Active Substance: MORPHINE SULFATE
     Indication: Product used for unknown indication
     Dosage: 10 MILLIGRAM, DOSAGE FORM: NOT SPECIFIED
     Route: 048
  208. MORPHINE SULFATE [Suspect]
     Active Substance: MORPHINE SULFATE
     Dosage: 10 MG, DOSAGE FORM: NOT SPECIFIED
     Route: 048
  209. MORPHINE SULFATE [Suspect]
     Active Substance: MORPHINE SULFATE
     Dosage: 10 MG, DOSAGE FORM: NOT SPECIFIED
     Route: 048
  210. MORPHINE SULFATE [Suspect]
     Active Substance: MORPHINE SULFATE
     Dosage: UNK, DOSAGE FORM: NOT SPECIFIED
     Route: 048
  211. MORPHINE SULFATE [Suspect]
     Active Substance: MORPHINE SULFATE
     Dosage: 10 MG, DOSAGE FORM: NOT SPECIFIED
     Route: 048
  212. MORPHINE SULFATE [Suspect]
     Active Substance: MORPHINE SULFATE
     Dosage: 10 MG, DOSAGE FORM: NOT SPECIFIED
     Route: 048
  213. MORPHINE SULFATE [Suspect]
     Active Substance: MORPHINE SULFATE
     Dosage: 10 MG, DOSAGE FORM: NOT SPECIFIED
     Route: 048
  214. MORPHINE SULFATE [Suspect]
     Active Substance: MORPHINE SULFATE
     Dosage: UNK
     Route: 065
  215. MORPHINE SULFATE [Suspect]
     Active Substance: MORPHINE SULFATE
     Dosage: UNK
     Route: 048
  216. MORPHINE SULFATE [Suspect]
     Active Substance: MORPHINE SULFATE
     Dosage: UNK (DOSGE FORM: NOT SPECIFIED)
     Route: 065
  217. MORPHINE SULFATE [Suspect]
     Active Substance: MORPHINE SULFATE
     Dosage: 10 MILLIGRAM
     Route: 065
  218. MORPHINE SULFATE [Suspect]
     Active Substance: MORPHINE SULFATE
     Dosage: UNK, DOSAGE FORM: NOT SPECIFIED
     Route: 065
  219. MORPHINE SULFATE [Suspect]
     Active Substance: MORPHINE SULFATE
     Dosage: UNK, DOSAGE FORM: NOT SPECIFIED
     Route: 065
  220. MORPHINE SULFATE [Suspect]
     Active Substance: MORPHINE SULFATE
     Dosage: UNK
     Route: 065
  221. MORPHINE SULFATE [Suspect]
     Active Substance: MORPHINE SULFATE
     Dosage: UNK
     Route: 065
  222. MORPHINE SULFATE [Suspect]
     Active Substance: MORPHINE SULFATE
     Dosage: 10 MILLIGRAM
     Route: 065
  223. MORPHINE SULFATE [Suspect]
     Active Substance: MORPHINE SULFATE
     Dosage: UNK
     Route: 065
  224. MORPHINE SULFATE [Suspect]
     Active Substance: MORPHINE SULFATE
     Dosage: 10 MILLIGRAM, DOSAGE FORM: NOT SPECIFIED
     Route: 048
  225. SYMBICORT [Suspect]
     Active Substance: BUDESONIDE\FORMOTEROL FUMARATE DIHYDRATE
     Indication: Product used for unknown indication
     Dosage: 2 DF, BID
     Route: 065
  226. SYMBICORT [Suspect]
     Active Substance: BUDESONIDE\FORMOTEROL FUMARATE DIHYDRATE
     Dosage: 2 DF, BID
  227. SYNTHROID [Suspect]
     Active Substance: LEVOTHYROXINE SODIUM
     Indication: Product used for unknown indication
     Dosage: UNK, DOSAGE FORM: NOT SPECIFIED
     Route: 065
  228. SYNTHROID [Suspect]
     Active Substance: LEVOTHYROXINE SODIUM
     Dosage: UNK, DOSAGE FORM: NOT SPECIFIED
     Route: 065
  229. TRAZODONE HYDROCHLORIDE [Suspect]
     Active Substance: TRAZODONE HYDROCHLORIDE
     Indication: Product used for unknown indication
     Dosage: 10 MILLIGRAM
     Route: 065
  230. TRAZODONE HYDROCHLORIDE [Suspect]
     Active Substance: TRAZODONE HYDROCHLORIDE
     Dosage: 12.5 MILLIGRAM
     Route: 065
  231. TRAZODONE HYDROCHLORIDE [Suspect]
     Active Substance: TRAZODONE HYDROCHLORIDE
     Dosage: 10 MILLIGRAM
     Route: 065
  232. VENTOLIN [Suspect]
     Active Substance: ALBUTEROL SULFATE
     Indication: Asthma
     Dosage: 100 MICROGRAM
     Route: 065
  233. VENTOLIN [Suspect]
     Active Substance: ALBUTEROL SULFATE
     Dosage: 100 MICROGRAM (DOSAGE FORM: NOT SPECIFIED)
     Route: 065
  234. VENTOLIN [Suspect]
     Active Substance: ALBUTEROL SULFATE
     Dosage: UNK; DOSAGE FORM: NOT SPECIFIED
     Route: 065
  235. VITAMIN D NOS [Suspect]
     Active Substance: VITAMIN D NOS
     Indication: Product used for unknown indication
     Dosage: UNK, DOSAGE FORM: NOT SPECIFIED
     Route: 048
  236. VITAMIN D NOS [Suspect]
     Active Substance: VITAMIN D NOS
     Dosage: 100 INTERNATIONAL UNIT
     Route: 048
  237. VITAMIN D NOS [Suspect]
     Active Substance: VITAMIN D NOS
     Dosage: UNK
     Route: 048
  238. XOLAIR [Suspect]
     Active Substance: OMALIZUMAB
     Indication: Product used for unknown indication
     Dosage: UNK; DOSAGE FORM: NOT SPECIFIED
     Route: 065
  239. ZOPICLONE [Suspect]
     Active Substance: ZOPICLONE
     Indication: Product used for unknown indication
     Dosage: UNK
     Route: 065
  240. ZOPICLONE [Suspect]
     Active Substance: ZOPICLONE
     Dosage: UNK
     Route: 065
  241. PYRILAMINE MALEATE [Suspect]
     Active Substance: PYRILAMINE MALEATE
     Indication: Product used for unknown indication
     Dosage: UNK, DOSAGE FORM: NOT SPECIFIED
     Route: 065
  242. PYRILAMINE MALEATE [Suspect]
     Active Substance: PYRILAMINE MALEATE
     Dosage: 10 MILLIGRAM
     Route: 048
  243. PYRILAMINE MALEATE [Suspect]
     Active Substance: PYRILAMINE MALEATE
     Dosage: 10 MILLIGRAM, DOSAGE FORM: NOT SPECIFIED
     Route: 065
  244. PREVACID [Suspect]
     Active Substance: LANSOPRAZOLE
     Indication: Product used for unknown indication
     Dosage: UNK (REPORTED AS FASTAB)
     Route: 065
  245. PREVACID [Suspect]
     Active Substance: LANSOPRAZOLE
     Dosage: UNK, DOSAGE FORM: NOT SPECIFIED
     Route: 048
  246. PREVACID [Suspect]
     Active Substance: LANSOPRAZOLE
     Dosage: UNK, DOSAGE FORM: NOT SPECIFIED
     Route: 065
  247. PANTOPRAZOLE SODIUM [Suspect]
     Active Substance: PANTOPRAZOLE SODIUM
     Indication: Product used for unknown indication
     Dosage: UNK
     Route: 065
  248. PANTOPRAZOLE SODIUM [Suspect]
     Active Substance: PANTOPRAZOLE SODIUM
     Indication: Immunisation
     Dosage: 10 MG, QD
     Route: 048
  249. PANTOPRAZOLE SODIUM [Suspect]
     Active Substance: PANTOPRAZOLE SODIUM
     Indication: Asthma
     Dosage: 100 MG, QD
     Route: 065
  250. PANTOPRAZOLE SODIUM [Suspect]
     Active Substance: PANTOPRAZOLE SODIUM
     Dosage: UNK
     Route: 065
  251. PANTOPRAZOLE SODIUM [Suspect]
     Active Substance: PANTOPRAZOLE SODIUM
     Dosage: UNK
     Route: 065
  252. PANTOPRAZOLE SODIUM [Suspect]
     Active Substance: PANTOPRAZOLE SODIUM
     Dosage: UNK
     Route: 065
  253. PANTOPRAZOLE SODIUM [Suspect]
     Active Substance: PANTOPRAZOLE SODIUM
     Dosage: UNK
     Route: 065
  254. PANTOPRAZOLE SODIUM [Suspect]
     Active Substance: PANTOPRAZOLE SODIUM
     Dosage: 8 MG, QD
     Route: 048
  255. PANTOPRAZOLE SODIUM [Suspect]
     Active Substance: PANTOPRAZOLE SODIUM
     Dosage: UNK
     Route: 065
  256. PANTOPRAZOLE SODIUM [Suspect]
     Active Substance: PANTOPRAZOLE SODIUM
     Dosage: UNK
     Route: 065
  257. PANTOPRAZOLE SODIUM [Suspect]
     Active Substance: PANTOPRAZOLE SODIUM
     Dosage: UNK
     Route: 065
  258. PANTOPRAZOLE SODIUM [Suspect]
     Active Substance: PANTOPRAZOLE SODIUM
     Dosage: UNK
     Route: 065
  259. PANTOPRAZOLE SODIUM [Suspect]
     Active Substance: PANTOPRAZOLE SODIUM
     Dosage: UNK
     Route: 065
  260. PANTOPRAZOLE SODIUM [Suspect]
     Active Substance: PANTOPRAZOLE SODIUM
     Dosage: UNK
     Route: 065
  261. PANTOPRAZOLE SODIUM [Suspect]
     Active Substance: PANTOPRAZOLE SODIUM
     Dosage: UNK
     Route: 065
  262. PANTOPRAZOLE SODIUM [Suspect]
     Active Substance: PANTOPRAZOLE SODIUM
     Dosage: 100 MG, UNK
     Route: 065
  263. PANTOPRAZOLE SODIUM [Suspect]
     Active Substance: PANTOPRAZOLE SODIUM
     Dosage: 10 MG, UNK
     Route: 065
  264. PANTOPRAZOLE SODIUM [Suspect]
     Active Substance: PANTOPRAZOLE SODIUM
     Dosage: UNK
     Route: 065
  265. PANTOPRAZOLE SODIUM [Suspect]
     Active Substance: PANTOPRAZOLE SODIUM
     Dosage: UNK
     Route: 065
  266. PANTOPRAZOLE SODIUM [Suspect]
     Active Substance: PANTOPRAZOLE SODIUM
     Dosage: UNK
     Route: 065
  267. PANTOPRAZOLE SODIUM [Suspect]
     Active Substance: PANTOPRAZOLE SODIUM
     Dosage: 0.25 MG, UNK
     Route: 048
  268. PANTOPRAZOLE SODIUM [Suspect]
     Active Substance: PANTOPRAZOLE SODIUM
     Dosage: 0.5 MG, UNK
     Route: 048
  269. PANTOPRAZOLE SODIUM [Suspect]
     Active Substance: PANTOPRAZOLE SODIUM
     Dosage: 75 MG, UNK
     Route: 048
  270. PANTOPRAZOLE SODIUM [Suspect]
     Active Substance: PANTOPRAZOLE SODIUM
     Dosage: UNK
     Route: 065
  271. PANTOPRAZOLE SODIUM [Suspect]
     Active Substance: PANTOPRAZOLE SODIUM
     Dosage: UNK
     Route: 065
  272. PANTOPRAZOLE SODIUM [Suspect]
     Active Substance: PANTOPRAZOLE SODIUM
     Dosage: UNK
     Route: 065
  273. PANTOPRAZOLE SODIUM [Suspect]
     Active Substance: PANTOPRAZOLE SODIUM
     Dosage: UNK
     Route: 065
  274. PANTOPRAZOLE SODIUM [Suspect]
     Active Substance: PANTOPRAZOLE SODIUM
     Dosage: UNK
     Route: 065
  275. PANTOPRAZOLE SODIUM [Suspect]
     Active Substance: PANTOPRAZOLE SODIUM
     Dosage: UNK
     Route: 065
  276. PANTOPRAZOLE SODIUM [Suspect]
     Active Substance: PANTOPRAZOLE SODIUM
     Dosage: UNK
     Route: 065
  277. PANTOPRAZOLE SODIUM [Suspect]
     Active Substance: PANTOPRAZOLE SODIUM
     Dosage: 1 DF, QD
     Route: 065
  278. PANTOPRAZOLE SODIUM [Suspect]
     Active Substance: PANTOPRAZOLE SODIUM
     Dosage: 2 DF, BID
     Route: 065
  279. PANTOPRAZOLE SODIUM [Suspect]
     Active Substance: PANTOPRAZOLE SODIUM
     Dosage: UNK
     Route: 065
  280. PANTOPRAZOLE SODIUM [Suspect]
     Active Substance: PANTOPRAZOLE SODIUM
     Dosage: UNK
     Route: 065
  281. PANTOPRAZOLE SODIUM [Suspect]
     Active Substance: PANTOPRAZOLE SODIUM
     Dosage: UNK
     Route: 048
  282. PANTOPRAZOLE SODIUM [Suspect]
     Active Substance: PANTOPRAZOLE SODIUM
     Dosage: UNK
     Route: 065
  283. PANTOPRAZOLE SODIUM [Suspect]
     Active Substance: PANTOPRAZOLE SODIUM
     Dosage: UNK
     Route: 065
  284. PANTOPRAZOLE SODIUM [Suspect]
     Active Substance: PANTOPRAZOLE SODIUM
     Dosage: UNK
     Route: 065
  285. MORPHINE SULFATE [Suspect]
     Active Substance: MORPHINE SULFATE
     Indication: Product used for unknown indication
     Dosage: 10 MILLIGRAM; DOSAGE FORM: NOT SPECIFIED
     Route: 048
  286. BUDESONIDE\FORMOTEROL FUMARATE [Suspect]
     Active Substance: BUDESONIDE\FORMOTEROL FUMARATE
     Indication: Product used for unknown indication
     Dosage: 4 DOSAGE FORM, EVERY DAY (QD)
     Route: 065
  287. BUDESONIDE\FORMOTEROL FUMARATE [Suspect]
     Active Substance: BUDESONIDE\FORMOTEROL FUMARATE
     Dosage: 2 DOSAGE FORM, EVERY DAY (QD)
     Route: 065
  288. FLUVIRAL [Suspect]
     Active Substance: INFLUENZA VIRUS VACCINE
     Indication: Immunisation
     Dosage: UNK
     Route: 065
  289. FLUVIRAL [Suspect]
     Active Substance: INFLUENZA VIRUS VACCINE
     Indication: Prophylaxis
     Dosage: UNK, DOSAGE FORM: NOT SPECIFIED
     Route: 065
  290. FLUVIRAL [Suspect]
     Active Substance: INFLUENZA VIRUS VACCINE
     Indication: Product used for unknown indication
     Dosage: UNK (DOSAGE FORM: NOT SPECIFIED)
     Route: 065
  291. FLUVIRAL [Suspect]
     Active Substance: INFLUENZA VIRUS VACCINE
     Dosage: UNK (FREQUENCY : TOTAL)
     Route: 065
  292. FLUVIRAL [Suspect]
     Active Substance: INFLUENZA VIRUS VACCINE
     Dosage: UNK (FREQUENCY : TOTAL)
     Route: 065
  293. FLUVIRAL [Suspect]
     Active Substance: INFLUENZA VIRUS VACCINE
     Dosage: UNK (DOSAGE FORM: NOT SPECIFIED)
     Route: 065
  294. SPIRIVA [Suspect]
     Active Substance: TIOTROPIUM BROMIDE MONOHYDRATE
     Indication: Product used for unknown indication
     Dosage: 1 DOSAGE FORM, 1 EVERY 1 DAYS
     Route: 065
  295. SPIRIVA [Suspect]
     Active Substance: TIOTROPIUM BROMIDE MONOHYDRATE
     Dosage: 1 DOSAGE FORM, 1 EVERY 1 DAYS
     Route: 065
  296. SPIRIVA [Suspect]
     Active Substance: TIOTROPIUM BROMIDE MONOHYDRATE
     Dosage: UNK
     Route: 065
  297. MORPHINE SULFATE [Suspect]
     Active Substance: MORPHINE SULFATE
     Indication: Product used for unknown indication
     Dosage: 10 MILLIGRAM
     Route: 048
  298. JUBLIA [Suspect]
     Active Substance: EFINACONAZOLE
     Indication: Product used for unknown indication
     Dosage: UNK; DOSAGE FORM: SOLUTION TOPICAL
     Route: 065
  299. NUCALA [Suspect]
     Active Substance: MEPOLIZUMAB
     Indication: Asthma
     Dosage: 100 MILLIGRAM; DOSAGE FORM: POWDER FOR SOLUTION SUBCUTANEOUS; ROUTE: INTRAVENOUS (NOT OTHERWISE SPEC
     Route: 042

REACTIONS (42)
  - Abdominal pain upper [Not Recovered/Not Resolved]
  - Anaemia [Not Recovered/Not Resolved]
  - Aspiration [Not Recovered/Not Resolved]
  - Asthenia [Not Recovered/Not Resolved]
  - Asthma [Not Recovered/Not Resolved]
  - Blood calcium increased [Not Recovered/Not Resolved]
  - Blood creatinine increased [Not Recovered/Not Resolved]
  - Blood test abnormal [Not Recovered/Not Resolved]
  - Bronchiectasis [Not Recovered/Not Resolved]
  - Bronchopulmonary aspergillosis allergic [Not Recovered/Not Resolved]
  - Constipation [Not Recovered/Not Resolved]
  - Cough [Not Recovered/Not Resolved]
  - Drug hypersensitivity [Not Recovered/Not Resolved]
  - Drug ineffective [Not Recovered/Not Resolved]
  - Drug ineffective [Not Recovered/Not Resolved]
  - Dyspnoea [Not Recovered/Not Resolved]
  - Fatigue [Not Recovered/Not Resolved]
  - Gastrooesophageal reflux disease [Not Recovered/Not Resolved]
  - General physical health deterioration [Not Recovered/Not Resolved]
  - Haemoptysis [Not Recovered/Not Resolved]
  - Headache [Not Recovered/Not Resolved]
  - Hypoxia [Not Recovered/Not Resolved]
  - Liver function test increased [Not Recovered/Not Resolved]
  - Lower respiratory tract infection [Not Recovered/Not Resolved]
  - Lung opacity [Not Recovered/Not Resolved]
  - Musculoskeletal stiffness [Not Recovered/Not Resolved]
  - Obstructive airways disorder [Not Recovered/Not Resolved]
  - Oedema peripheral [Not Recovered/Not Resolved]
  - Pain [Not Recovered/Not Resolved]
  - Pleural effusion [Not Recovered/Not Resolved]
  - Pneumonia [Not Recovered/Not Resolved]
  - Product dose omission issue [Not Recovered/Not Resolved]
  - Pulmonary fibrosis [Not Recovered/Not Resolved]
  - Pulmonary mass [Not Recovered/Not Resolved]
  - Pyrexia [Not Recovered/Not Resolved]
  - Rales [Not Recovered/Not Resolved]
  - Sputum discoloured [Not Recovered/Not Resolved]
  - Total lung capacity decreased [Not Recovered/Not Resolved]
  - Transaminases increased [Not Recovered/Not Resolved]
  - Tremor [Not Recovered/Not Resolved]
  - Upper respiratory tract infection [Not Recovered/Not Resolved]
  - Wheezing [Not Recovered/Not Resolved]
